FAERS Safety Report 13789588 (Version 1)
Quarter: 2017Q3

REPORT INFORMATION
  Report Type: Other
  Country: NL (occurrence: NL)
  Receive Date: 20170725
  Receipt Date: 20170725
  Transmission Date: 20171127
  Serious: Yes (Other)
  Sender: FDA-Public Use
  Company Number: NL-VELOXIS PHARMACEUTICALS-2023729

PATIENT
  Age: 62 Year
  Sex: Female

DRUGS (3)
  1. MYCOPHENOLIC ACID (MYCOPHENOLATE SODIUM) [Suspect]
     Active Substance: MYCOPHENOLATE SODIUM
  2. ENVARSUS XR [Suspect]
     Active Substance: TACROLIMUS
     Indication: LUNG TRANSPLANT
  3. PREDNISONE. [Suspect]
     Active Substance: PREDNISONE

REACTIONS (5)
  - Atrial fibrillation [Unknown]
  - Off label use [Unknown]
  - Pseudomonas infection [Unknown]
  - Aspergillus infection [Unknown]
  - Bronchial anastomosis complication [Recovered/Resolved]
